FAERS Safety Report 5635271-7 (Version None)
Quarter: 2008Q1

REPORT INFORMATION
  Report Type: 
  Country: None (occurrence: None)
  Receive Date: 20080222
  Receipt Date: 20080212
  Transmission Date: 20080703
  Serious: Yes (Other)
  Sender: FDA-Public Use
  Company Number: US-PFIZER INC-2007087616

PATIENT
  Sex: Female

DRUGS (4)
  1. CHANTIX [Suspect]
  2. DRUG USED IN DIABETES [Concomitant]
  3. ANTIHYPERTENSIVES [Concomitant]
  4. THYROID TAB [Concomitant]

REACTIONS (2)
  - EYE EXCISION [None]
  - MYDRIASIS [None]
